FAERS Safety Report 21233117 (Version 1)
Quarter: 2022Q3

REPORT INFORMATION
  Report Type: Spontaneous
  Country: US (occurrence: US)
  Receive Date: 20220819
  Receipt Date: 20220819
  Transmission Date: 20221027
  Serious: No
  Sender: FDA-Public Use
  Company Number: US-SEATTLE GENETICS-2022SGN06781

PATIENT
  Age: 54 Year
  Sex: Female

DRUGS (2)
  1. ZOCOR [Interacting]
     Active Substance: SIMVASTATIN
     Dosage: UNK
     Route: 048
  2. TUKYSA [Interacting]
     Active Substance: TUCATINIB
     Indication: Breast cancer
     Dosage: UNK
     Route: 048

REACTIONS (1)
  - Drug interaction [Unknown]

NARRATIVE: CASE EVENT DATE: 20220714
